FAERS Safety Report 24279983 (Version 2)
Quarter: 2024Q3

REPORT INFORMATION
  Report Type: Spontaneous
  Country: US (occurrence: US)
  Receive Date: 20240904
  Receipt Date: 20240906
  Transmission Date: 20241016
  Serious: No
  Sender: BLUEPRINT MEDICINES
  Company Number: US-Blueprint Medicines Corporation-4634

PATIENT
  Sex: Male

DRUGS (1)
  1. AYVAKIT [Suspect]
     Active Substance: AVAPRITINIB
     Indication: Advanced systemic mastocytosis
     Route: 065
     Dates: start: 20240724

REACTIONS (5)
  - Rhinorrhoea [Unknown]
  - Lacrimation increased [Unknown]
  - Hypersensitivity [Unknown]
  - Constipation [Unknown]
  - Flatulence [Unknown]
